FAERS Safety Report 8159669 (Version 1)
Quarter: 2020Q3

REPORT INFORMATION
  Report Type: Report from Study
  Country: PL (occurrence: PL)
  Receive Date: 20110928
  Receipt Date: 20110928
  Transmission Date: 20201105
  Serious: Yes (Life-Threatening, Hospitalization, Other)
  Sender: FDA-Public Use
  Company Number: PL-JNJFOC-20100603417

PATIENT
  Age: 62 Year
  Sex: Male
  Weight: 85 kg

DRUGS (10)
  1. ATORVASTATIN [Concomitant]
     Active Substance: ATORVASTATIN
     Indication: ILL-DEFINED DISORDER
  2. RIVAROXABAN [Suspect]
     Active Substance: RIVAROXABAN
     Indication: ACUTE CORONARY SYNDROME
     Route: 048
     Dates: start: 20091110, end: 20091110
  3. AUGMENTIN [Suspect]
     Active Substance: AMOXICILLIN\CLAVULANATE POTASSIUM
     Indication: PNEUMONIA
  4. INSULIN NOS [Concomitant]
     Active Substance: INSULIN NOS
     Indication: ILL-DEFINED DISORDER
  5. RIVAROXABAN [Suspect]
     Active Substance: RIVAROXABAN
     Route: 048
     Dates: start: 20091111, end: 20100609
  6. CLOPIDOGREL [Suspect]
     Active Substance: CLOPIDOGREL BISULFATE
     Indication: ACUTE CORONARY SYNDROME
     Dates: end: 20100609
  7. CONCOR [Concomitant]
     Active Substance: BISOPROLOL FUMARATE
     Indication: ILL-DEFINED DISORDER
  8. CIPROFLOXACIN. [Suspect]
     Active Substance: CIPROFLOXACIN
     Indication: PNEUMONIA
  9. ASPIRIN. [Concomitant]
     Active Substance: ASPIRIN
     Indication: ACUTE CORONARY SYNDROME
     Dates: end: 20100609
  10. RAMIPRIL. [Concomitant]
     Active Substance: RAMIPRIL
     Indication: ILL-DEFINED DISORDER

REACTIONS (1)
  - Thrombocytopenia [Recovered/Resolved]

NARRATIVE: CASE EVENT DATE: 20100603
